FAERS Safety Report 6552989-2 (Version None)
Quarter: 2010Q1

REPORT INFORMATION
  Report Type: 
  Country: None (occurrence: None)
  Receive Date: 20100127
  Receipt Date: 20100119
  Transmission Date: 20100710
  Serious: Yes (Hospitalization)
  Sender: FDA-Public Use
  Company Number: US-BIOGENIDEC-2010BI002284

PATIENT
  Age: 62 Year
  Sex: Male
  Weight: 99 kg

DRUGS (1)
  1. TYSABRI [Suspect]
     Indication: MULTIPLE SCLEROSIS
     Route: 042
     Dates: start: 20070601, end: 20100114

REACTIONS (2)
  - ASTHENIA [None]
  - RENAL CANCER [None]
